FAERS Safety Report 6297255-8 (Version None)
Quarter: 2009Q3

REPORT INFORMATION
  Report Type: 
  Country: None (occurrence: None)
  Receive Date: 20090805
  Receipt Date: 20070711
  Transmission Date: 20100115
  Serious: Yes (Other)
  Sender: FDA-Public Use
  Company Number: US-ASTRAZENECA-2006UW11940

PATIENT
  Age: 19915 Day
  Sex: Female
  Weight: 83.9 kg

DRUGS (10)
  1. SEROQUEL [Suspect]
     Indication: HALLUCINATION, AUDITORY
     Dosage: 12.5 TO 25 MG
     Route: 048
     Dates: start: 20020122
  2. ZOLOFT [Concomitant]
     Dosage: 25 TO 50 MG AT NIGHT
     Route: 048
     Dates: start: 20020122
  3. ATARAX [Concomitant]
     Route: 048
     Dates: start: 20020920
  4. KLONOPIN [Concomitant]
     Route: 048
     Dates: start: 20020122
  5. ENALAPRIL MALEATE [Concomitant]
     Route: 048
     Dates: start: 20050727
  6. HYDROCHLOROTHIAZIDE [Concomitant]
     Route: 048
     Dates: start: 20050727
  7. LORATADINE [Concomitant]
     Dates: start: 20050727
  8. NEURONTIN [Concomitant]
     Route: 048
     Dates: start: 20051006
  9. VICODIN [Concomitant]
     Indication: BACK PAIN
     Route: 048
     Dates: start: 20051006
  10. MECLIZINE [Concomitant]
     Indication: DIZZINESS
     Dates: start: 20051006

REACTIONS (4)
  - DIABETES MELLITUS [None]
  - DIABETIC NEUROPATHY [None]
  - HYPOGLYCAEMIA [None]
  - NEUROPATHY PERIPHERAL [None]
